FAERS Safety Report 8277181-5 (Version None)
Quarter: 2012Q2

REPORT INFORMATION
  Report Type: 
  Country: None (occurrence: None)
  Receive Date: 20120412
  Receipt Date: 20120327
  Transmission Date: 20120825
  Serious: No
  Sender: FDA-Public Use
  Company Number: US-ROXANE LABORATORIES, INC.-2012-RO-00912RO

PATIENT
  Sex: Male

DRUGS (2)
  1. ROXICET [Suspect]
     Indication: PAIN
     Route: 048
     Dates: start: 20120101, end: 20120301
  2. PARKINSON'S MEDICATION [Concomitant]
     Indication: PARKINSON'S DISEASE

REACTIONS (1)
  - ABDOMINAL PAIN UPPER [None]
